FAERS Safety Report 25620117 (Version 3)
Quarter: 2025Q4

REPORT INFORMATION
  Report Type: Spontaneous
  Country: CN (occurrence: CN)
  Receive Date: 20250730
  Receipt Date: 20251212
  Transmission Date: 20260117
  Serious: Yes (Hospitalization)
  Sender: BIOGEN
  Company Number: CN-BIOGEN-2025BI01318463

PATIENT
  Age: 58 Year
  Sex: Male

DRUGS (2)
  1. QALSODY [Suspect]
     Active Substance: TOFERSEN
     Indication: Amyotrophic lateral sclerosis
     Dates: start: 20250718, end: 20250815
  2. QALSODY [Suspect]
     Active Substance: TOFERSEN

REACTIONS (2)
  - Orthostatic headache [Recovered/Resolved]
  - CSF protein increased [Not Recovered/Not Resolved]

NARRATIVE: CASE EVENT DATE: 20250719
